FAERS Safety Report 9307792 (Version 2)
Quarter: 2013Q2

REPORT INFORMATION
  Report Type: Report from Study
  Country: BE (occurrence: BE)
  Receive Date: 20130524
  Receipt Date: 20130619
  Transmission Date: 20140414
  Serious: Yes (Death, Hospitalization, Other)
  Sender: FDA-Public Use
  Company Number: BE-PFIZER INC-2013156632

PATIENT
  Age: 78 Year
  Sex: Male

DRUGS (2)
  1. XALKORI [Suspect]
     Indication: NON-SMALL CELL LUNG CANCER
     Dosage: 250 MG, 2X/DAY
     Route: 048
     Dates: start: 20130416, end: 20130517
  2. LORAMET [Concomitant]

REACTIONS (8)
  - Diarrhoea [Not Recovered/Not Resolved]
  - Dehydration [Not Recovered/Not Resolved]
  - Renal failure [Not Recovered/Not Resolved]
  - General physical health deterioration [Not Recovered/Not Resolved]
  - Dysphagia [Fatal]
  - Cardiovascular disorder [Fatal]
  - Respiratory arrest [Recovering/Resolving]
  - Coma [Unknown]
